FAERS Safety Report 5076711-4 (Version None)
Quarter: 2006Q3

REPORT INFORMATION
  Report Type: 
  Country: None (occurrence: None)
  Receive Date: 20060725
  Receipt Date: 20060306
  Transmission Date: 20061208
  Serious: No
  Sender: FDA-Public Use
  Company Number: 200611327BWH

PATIENT
  Age: 59 Year
  Sex: Male

DRUGS (4)
  1. NEXAVAR [Suspect]
     Indication: RENAL CELL CARCINOMA STAGE UNSPECIFIED
     Dosage: 400 MG, BID, ORAL
     Route: 048
     Dates: start: 20060210
  2. BENICAR [Concomitant]
  3. ZOCOR [Concomitant]
  4. PREDNISONE TAB [Concomitant]

REACTIONS (4)
  - PAIN OF SKIN [None]
  - PRURITUS [None]
  - SKIN CHAPPED [None]
  - SKIN IRRITATION [None]
